FAERS Safety Report 5582960-9 (Version None)
Quarter: 2008Q1

REPORT INFORMATION
  Report Type: 
  Country: None (occurrence: None)
  Receive Date: 20080107
  Receipt Date: 20071228
  Transmission Date: 20080703
  Serious: Yes (Hospitalization)
  Sender: FDA-Public Use
  Company Number: PHHO2007FR19030

PATIENT
  Age: 72 Year
  Sex: Male

DRUGS (4)
  1. AMN107 [Suspect]
     Indication: CHRONIC MYELOID LEUKAEMIA
     Dosage: 800MG
     Route: 048
     Dates: start: 20060803
  2. PLAVIX [Concomitant]
     Indication: ISCHAEMIC HEART DISEASE PROPHYLAXIS
  3. KENZEN [Concomitant]
     Indication: HYPERTENSION
  4. ACETYLSALICYLIC ACID SRT [Concomitant]
     Indication: MYOCARDIAL INFARCTION

REACTIONS (6)
  - ACUTE CORONARY SYNDROME [None]
  - ANGINA UNSTABLE [None]
  - ANGIOPLASTY [None]
  - ARTERIAL STENOSIS [None]
  - CHEST PAIN [None]
  - STENT PLACEMENT [None]
